FAERS Safety Report 21208853 (Version 3)
Quarter: 2022Q3

REPORT INFORMATION
  Report Type: Report from Study
  Country: US (occurrence: US)
  Receive Date: 20220812
  Receipt Date: 20220826
  Transmission Date: 20221026
  Serious: No
  Sender: FDA-Public Use
  Company Number: US-NOVARTISTESTPH-NVSC2022US182861

PATIENT
  Sex: Female
  Weight: 93.424 kg

DRUGS (2)
  1. TREPROSTINIL [Suspect]
     Active Substance: TREPROSTINIL
     Indication: Pulmonary arterial hypertension
     Dosage: UNK UNK, CONT (10 NG/KG/MIN, CONTINUOUS)
     Route: 042
     Dates: start: 20220804
  2. OPSUMIT [Concomitant]
     Active Substance: MACITENTAN
     Indication: Product used for unknown indication
     Dosage: UNK
     Route: 065

REACTIONS (13)
  - Flushing [Recovering/Resolving]
  - Skin irritation [Unknown]
  - Erythema [Unknown]
  - Skin burning sensation [Unknown]
  - Skin swelling [Unknown]
  - Chills [Unknown]
  - Pyrexia [Unknown]
  - Urticaria [Unknown]
  - Rash erythematous [Unknown]
  - Pruritus [Unknown]
  - Nausea [Recovering/Resolving]
  - Headache [Recovering/Resolving]
  - Rash [Unknown]
